FAERS Safety Report 4924402-X (Version None)
Quarter: 2006Q1

REPORT INFORMATION
  Report Type: 
  Country: None (occurrence: None)
  Receive Date: 20060221
  Receipt Date: 20060208
  Transmission Date: 20060701
  Serious: Yes (Hospitalization)
  Sender: FDA-Public Use
  Company Number: 2005067944

PATIENT
  Age: 40 Year
  Sex: Female
  Weight: 59.4212 kg

DRUGS (9)
  1. SUTENT [Suspect]
     Indication: BREAST CANCER METASTATIC
     Dosage: 50 MG (50 MG, DAILY FOR FOUR WEEKS), ORAL
     Route: 048
     Dates: start: 20050210, end: 20050309
  2. ATENOLOL [Concomitant]
  3. ZOMETA [Concomitant]
  4. MULTIVITAMIN [Concomitant]
  5. CALCIUM (CALCIUM) [Concomitant]
  6. DURAGESIC-100 [Concomitant]
  7. VICODIN [Concomitant]
  8. ZOFRAN [Concomitant]
  9. MARINOL [Concomitant]

REACTIONS (13)
  - CONTUSION [None]
  - DISEASE PROGRESSION [None]
  - FATIGUE [None]
  - HAEMORRHAGE [None]
  - HYPERCALCAEMIA [None]
  - INFLAMMATION [None]
  - MALIGNANT PLEURAL EFFUSION [None]
  - MASS [None]
  - NAUSEA [None]
  - PULMONARY OEDEMA [None]
  - SINUS TACHYCARDIA [None]
  - SOFT TISSUE DISORDER [None]
  - VOMITING [None]
